FAERS Safety Report 4953881-7 (Version None)
Quarter: 2006Q1

REPORT INFORMATION
  Report Type: 
  Country: None (occurrence: None)
  Receive Date: 20060327
  Receipt Date: 20060327
  Transmission Date: 20060701
  Serious: Yes (Death)
  Sender: FDA-Public Use
  Company Number: None

PATIENT
  Age: 24 Year
  Sex: Female
  Weight: 61.2356 kg

DRUGS (3)
  1. MIFEPRISTONE 200 MCG [Suspect]
     Indication: ABORTION
     Dosage: 200 MCG   1 PO
     Route: 048
     Dates: start: 20060302, end: 20060302
  2. MISOPROSTOL [Suspect]
     Indication: ABORTION
     Dosage: 200 MCG 1 VAG
     Route: 067
     Dates: start: 20060304, end: 20060304
  3. HYRDROCOD/APAP -GENERIC FOR VICODIN- [Concomitant]

REACTIONS (10)
  - ABDOMINAL PAIN [None]
  - BACTERIAL INFECTION [None]
  - CLOSTRIDIAL INFECTION [None]
  - GASTROINTESTINAL NECROSIS [None]
  - GENERAL PHYSICAL HEALTH DETERIORATION [None]
  - MALAISE [None]
  - SEPSIS [None]
  - SURGICAL PROCEDURE REPEATED [None]
  - SWELLING [None]
  - VOMITING [None]
